FAERS Safety Report 8821613 (Version 1)
Quarter: 2012Q4

REPORT INFORMATION
  Report Type: 
  Country: US (occurrence: US)
  Receive Date: 20121002
  Receipt Date: 20121002
  Transmission Date: 20130627
  Serious: Yes (Other)
  Sender: FDA-Public Use
  Company Number: US-009507513-1209USA008250

PATIENT
  Sex: Female

DRUGS (1)
  1. VYTORIN [Suspect]
     Dosage: UNK
     Route: 048
     Dates: start: 2007

REACTIONS (3)
  - Cardiac operation [Unknown]
  - Discomfort [Unknown]
  - Malaise [Unknown]
